FAERS Safety Report 24216395 (Version 2)
Quarter: 2024Q3

REPORT INFORMATION
  Report Type: Spontaneous
  Country: JP (occurrence: JP)
  Receive Date: 20240816
  Receipt Date: 20240830
  Transmission Date: 20241016
  Serious: No
  Sender: JOHNSON AND JOHNSON
  Company Number: JP-JNJFOC-20240834059

PATIENT
  Age: 34 Year
  Sex: Male

DRUGS (4)
  1. SIMPONI [Suspect]
     Active Substance: GOLIMUMAB
     Indication: Colitis ulcerative
     Dosage: DOSE UNKNOWN
     Route: 058
  2. AZATHIOPRINE [Suspect]
     Active Substance: AZATHIOPRINE
     Indication: Colitis ulcerative
     Dosage: DOSE UNKNOWN
     Route: 048
  3. MESALAMINE [Suspect]
     Active Substance: MESALAMINE
     Indication: Colitis ulcerative
     Dosage: DOSE UNKNOWN
     Route: 048
  4. VEDOLIZUMAB [Concomitant]
     Active Substance: VEDOLIZUMAB
     Indication: Colitis ulcerative
     Dosage: DOSE UNKNOWN
     Route: 065

REACTIONS (1)
  - Neoplasm [Recovered/Resolved]
